FAERS Safety Report 9149474 (Version 1)
Quarter: 2013Q1

REPORT INFORMATION
  Report Type: Report from Study
  Country: DE (occurrence: DE)
  Receive Date: 20130308
  Receipt Date: 20130308
  Transmission Date: 20140127
  Serious: Yes (Death, Hospitalization)
  Sender: FDA-Public Use
  Company Number: DE-ASTELLAS-2013US002535

PATIENT
  Age: 67 Year
  Sex: Male
  Weight: 42 kg

DRUGS (9)
  1. ERLOTINIB TABLET [Suspect]
     Indication: NON-SMALL CELL LUNG CANCER METASTATIC
     Dosage: 100 MG, UID/QD
     Route: 048
     Dates: start: 20110705, end: 20110714
  2. PANTOPRAZOL [Concomitant]
     Indication: GASTROOESOPHAGEAL REFLUX DISEASE
     Dosage: 40 MG, UID/QD
     Route: 048
     Dates: start: 20110428, end: 20110714
  3. IBUPROFEN [Concomitant]
     Indication: PAIN
     Dosage: 800 MG, BID
     Route: 048
     Dates: start: 20110428, end: 20110714
  4. IBUPROFEN [Concomitant]
     Dosage: UNK
     Route: 048
     Dates: start: 20110720
  5. INSTANYL [Concomitant]
     Indication: PAIN
     Dosage: 50 UG, PRN
     Route: 045
     Dates: start: 20110428
  6. TRANSTEC PRO [Concomitant]
     Indication: PAIN
     Dosage: 35 UG, Q3D
     Route: 062
     Dates: start: 20110428
  7. IBUBETA [Concomitant]
     Indication: PAIN
     Dosage: 800 MG, BID
     Route: 048
     Dates: start: 20110428
  8. CIPRO                              /00697202/ [Concomitant]
     Indication: INFECTION
     Dosage: 500 MG, BID
     Route: 048
     Dates: start: 20110617, end: 20110627
  9. GRANOCYTE [Concomitant]
     Indication: LEUKOPENIA
     Dosage: 170 U, UID/QD
     Route: 058
     Dates: start: 20110617, end: 20110621

REACTIONS (3)
  - Incorrect dose administered [Unknown]
  - Infection [Fatal]
  - Pain [Recovered/Resolved]
